FAERS Safety Report 25140713 (Version 2)
Quarter: 2025Q3

REPORT INFORMATION
  Report Type: Spontaneous
  Country: SA (occurrence: SA)
  Receive Date: 20250331
  Receipt Date: 20250703
  Transmission Date: 20251020
  Serious: Yes (Other)
  Sender: Steriscience PTE
  Company Number: SA-STERISCIENCE B.V.-2025-ST-000568

PATIENT
  Sex: Female

DRUGS (10)
  1. ONDANSETRON [Suspect]
     Active Substance: ONDANSETRON
     Indication: Morning sickness
     Route: 065
  2. ASPIRIN [Suspect]
     Active Substance: ASPIRIN
     Indication: Antiphospholipid syndrome
     Route: 065
  3. ENOXAPARIN SODIUM [Suspect]
     Active Substance: ENOXAPARIN SODIUM
     Indication: Antiphospholipid syndrome
  4. PRIMPERAN [Suspect]
     Active Substance: METOCLOPRAMIDE HYDROCHLORIDE
     Indication: Morning sickness
     Route: 065
  5. PHENERGAN [Suspect]
     Active Substance: PROMETHAZINE HYDROCHLORIDE
     Indication: Morning sickness
     Route: 065
  6. PYRIDOXINE [Suspect]
     Active Substance: PYRIDOXINE
     Indication: Morning sickness
     Route: 065
  7. CEPHRADINE [Suspect]
     Active Substance: CEPHRADINE
     Indication: Urinary tract infection
     Route: 065
  8. YUTOPAR [Suspect]
     Active Substance: RITODRINE HYDROCHLORIDE
     Indication: Premature labour
     Route: 065
  9. DEXAMETHASONE [Suspect]
     Active Substance: DEXAMETHASONE
     Indication: Premature labour
     Route: 065
  10. MEPERIDINE [Suspect]
     Active Substance: MEPERIDINE
     Indication: Labour pain
     Route: 065

REACTIONS (3)
  - Premature labour [Unknown]
  - Maternal exposure during pregnancy [Unknown]
  - Drug ineffective for unapproved indication [Unknown]
